FAERS Safety Report 25573983 (Version 1)
Quarter: 2025Q3

REPORT INFORMATION
  Report Type: Spontaneous
  Country: CA (occurrence: CA)
  Receive Date: 20250717
  Receipt Date: 20250717
  Transmission Date: 20251020
  Serious: Yes (Hospitalization, Other)
  Sender: B. BRAUN MEDICAL INC.
  Company Number: None

PATIENT
  Age: 69 Year
  Sex: Male

DRUGS (1)
  1. HEPARIN SODIUM [Suspect]
     Active Substance: HEPARIN SODIUM

REACTIONS (4)
  - Amaurosis fugax [Recovered/Resolved]
  - Heparin-induced thrombocytopenia [Recovered/Resolved]
  - Post procedural pulmonary embolism [Recovered/Resolved]
  - Thrombophlebitis [Recovered/Resolved]
